FAERS Safety Report 25439625 (Version 1)
Quarter: 2025Q2

REPORT INFORMATION
  Report Type: Spontaneous
  Country: US (occurrence: None)
  Receive Date: 20250615
  Receipt Date: 20250615
  Transmission Date: 20250717
  Serious: Yes (Disabling)
  Sender: FDA-CTU
  Company Number: None

PATIENT
  Age: 34 Year
  Sex: Male
  Weight: 110.25 kg

DRUGS (3)
  1. BIOTIN\FINASTERIDE\KETOCONAZOLE\MINOXIDIL [Suspect]
     Active Substance: BIOTIN\FINASTERIDE\KETOCONAZOLE\MINOXIDIL
     Indication: Alopecia
     Dosage: FREQUENCY : DAILY;?OTHER ROUTE : 4 SPRAYS A DAY;?
     Route: 050
     Dates: start: 20250413, end: 20250424
  2. AMLODIPINE [Concomitant]
     Active Substance: AMLODIPINE BESYLATE
  3. DORZOLAMIDE [Concomitant]
     Active Substance: DORZOLAMIDE

REACTIONS (6)
  - Erectile dysfunction [None]
  - Loss of libido [None]
  - Depression [None]
  - Anxiety [None]
  - Anhedonia [None]
  - Genital hypoaesthesia [None]

NARRATIVE: CASE EVENT DATE: 20250424
